FAERS Safety Report 13317837 (Version 8)
Quarter: 2018Q3

REPORT INFORMATION
  Report Type: Spontaneous
  Country: US (occurrence: US)
  Receive Date: 20170310
  Receipt Date: 20180723
  Transmission Date: 20181010
  Serious: No
  Sender: FDA-Public Use
  Company Number: US-PFIZER INC-2017092848

PATIENT
  Age: 42 Year
  Sex: Female
  Weight: 117.1 kg

DRUGS (7)
  1. IBRANCE [Suspect]
     Active Substance: PALBOCICLIB
     Dosage: 125 MG, CYCLIC (DAY 1?21 EVERY 28 DAYS)
     Route: 048
     Dates: start: 20170215
  2. IBRANCE [Suspect]
     Active Substance: PALBOCICLIB
     Dosage: 125 MG, CYCLIC (DAY 1?21 EVERY 28 DAYS)
     Route: 048
     Dates: start: 20170215
  3. IBRANCE [Suspect]
     Active Substance: PALBOCICLIB
     Dosage: 125 MG, CYCLIC (DAY 1?21 EVERY 28 DAYS)
     Route: 048
     Dates: start: 20170215
  4. IBRANCE [Suspect]
     Active Substance: PALBOCICLIB
     Dosage: 125 MG, CYCLIC (DAYS 1? 21 Q 28 DAYS )
     Route: 048
     Dates: start: 20170215
  5. IBRANCE [Suspect]
     Active Substance: PALBOCICLIB
     Indication: BREAST CANCER METASTATIC
     Dosage: 125 MG, CYCLIC (DAY 1?21 EVERY 28 DAYS)
     Route: 048
     Dates: start: 20170212
  6. IBRANCE [Suspect]
     Active Substance: PALBOCICLIB
     Dosage: 125 MG, CYCLIC (DAY 1?21 EVERY 28 DAYS)
     Route: 048
     Dates: start: 20170215
  7. IBRANCE [Suspect]
     Active Substance: PALBOCICLIB
     Dosage: 125 MG, CYCLIC (DAY 1?21 Q 28 DAYS)
     Route: 048
     Dates: start: 20170215

REACTIONS (9)
  - Muscle strain [Unknown]
  - Haematocrit decreased [Unknown]
  - Blood parathyroid hormone increased [Unknown]
  - Drug dose omission [Unknown]
  - Haemoglobin decreased [Unknown]
  - Blood calcium decreased [Unknown]
  - Flank pain [Unknown]
  - White blood cell count decreased [Unknown]
  - Renal pain [Unknown]
